FAERS Safety Report 10291312 (Version 2)
Quarter: 2014Q3

REPORT INFORMATION
  Report Type: Spontaneous
  Country: RO (occurrence: None)
  Receive Date: 20140708
  Receipt Date: 20140729
  Transmission Date: 20150326
  Serious: Yes (Hospitalization)
  Sender: FDA-Public Use
  Company Number: AUR-APL-2014-06961

PATIENT
  Age: 59 Year
  Sex: Female

DRUGS (2)
  1. PEGINTERFERON ALFA-2A [Suspect]
     Active Substance: PEGINTERFERON ALFA-2A
     Indication: CHRONIC HEPATITIS C
  2. RIBAVIRIN. [Suspect]
     Active Substance: RIBAVIRIN
     Indication: CHRONIC HEPATITIS C

REACTIONS (13)
  - Hypoaesthesia [None]
  - Mental status changes [None]
  - Spinal pain [None]
  - Acute psychosis [None]
  - Quadriparesis [None]
  - Agitation [None]
  - Demyelinating polyneuropathy [None]
  - Abnormal dreams [None]
  - Guillain-Barre syndrome [None]
  - VIIth nerve paralysis [None]
  - Paraesthesia [None]
  - Asthenia [None]
  - Hallucination, visual [None]
